FAERS Safety Report 9326920 (Version 2)
Quarter: 2014Q2

REPORT INFORMATION
  Report Type: Spontaneous
  Country: US (occurrence: US)
  Receive Date: 20130604
  Receipt Date: 20140501
  Transmission Date: 20141212
  Serious: Yes (Other)
  Sender: FDA-Public Use
  Company Number: US-AMGEN-USASP2013036400

PATIENT
  Age: 51 Year
  Sex: Female
  Weight: 79.37 kg

DRUGS (5)
  1. ENBREL [Suspect]
     Indication: RHEUMATOID ARTHRITIS
     Dosage: 50 MG, WEEKLY
     Route: 058
     Dates: start: 20120606
  2. FOLIC ACID [Concomitant]
     Dosage: 1 MG, QD (TAKE ONE PO QD 90)
     Route: 048
  3. METHOTREXATE [Concomitant]
     Dosage: 2.5 MG, QWK
     Route: 048
  4. PREDNISONE [Concomitant]
     Dosage: 10 MG, QD AT 9 AM
     Route: 048
  5. PREDNISONE [Concomitant]
     Dosage: 5 MG, AT 9 AM
     Route: 048

REACTIONS (4)
  - Tooth infection [Recovering/Resolving]
  - Glomerular filtration rate decreased [Unknown]
  - Vulvovaginal mycotic infection [Recovering/Resolving]
  - Arthralgia [Recovering/Resolving]
